FAERS Safety Report 9096333 (Version 2)
Quarter: 2013Q1

REPORT INFORMATION
  Report Type: Report from Study
  Country: IL (occurrence: IL)
  Receive Date: 20130207
  Receipt Date: 20130314
  Transmission Date: 20140127
  Serious: Yes (Other)
  Sender: FDA-Public Use
  Company Number: IL-BAYER-2013-013046

PATIENT
  Sex: Female

DRUGS (6)
  1. BETAFERON [Suspect]
     Indication: MULTIPLE SCLEROSIS
     Dosage: UNK
     Dates: start: 20030821
  2. MEMANTINE HYDROCHLORIDE [Concomitant]
     Dosage: 10 MG, UNK
  3. ASTO [Concomitant]
     Dosage: 10 MG, UNK
  4. BACLOSAL [Concomitant]
     Dosage: 30 MG, UNK
  5. LOSEC [Concomitant]
  6. DERALIN [Concomitant]
     Dosage: 10 MG, UNK

REACTIONS (1)
  - Urinary tract disorder [None]
